FAERS Safety Report 8006310-3 (Version None)
Quarter: 2011Q4

REPORT INFORMATION
  Report Type: 
  Country: None (occurrence: None)
  Receive Date: 20111226
  Receipt Date: 20111220
  Transmission Date: 20120403
  Serious: Yes (Death, Hospitalization)
  Sender: FDA-Public Use
  Company Number: PHHY2011DE108790

PATIENT
  Sex: Female
  Weight: 92 kg

DRUGS (7)
  1. LEVOTHYROXINE SODIUM [Concomitant]
     Dosage: 112.5 MG/DAY
     Route: 048
     Dates: start: 20060803
  2. HYDROCHLOROTHIAZIDE [Suspect]
     Dosage: 12.5 MG/DAY
     Route: 048
     Dates: start: 20090106
  3. BETA-ACETYLDIGOXIN [Concomitant]
     Dosage: 0.2 MG/DAY
     Route: 048
     Dates: start: 20081209
  4. ALISKIREN [Suspect]
     Indication: HYPERTENSION
     Route: 048
     Dates: start: 20081209, end: 20090529
  5. BISOPROLOL [Concomitant]
     Dosage: 5 MG/DAY
     Dates: start: 20060502
  6. IRBESARTAN [Concomitant]
     Dosage: 150 MG/DAY
     Route: 048
     Dates: start: 20090529
  7. MARCUMAR [Concomitant]
     Dosage: 3 MG/DAY
     Route: 048
     Dates: start: 20081210

REACTIONS (1)
  - RECTAL CANCER METASTATIC [None]
